FAERS Safety Report 13941939 (Version 12)
Quarter: 2020Q2

REPORT INFORMATION
  Report Type: Spontaneous
  Country: GB (occurrence: GB)
  Receive Date: 20170906
  Receipt Date: 20200402
  Transmission Date: 20200713
  Serious: Yes (Other)
  Sender: FDA-Public Use
  Company Number: GB-MYLANLABS-2017M1054735

PATIENT
  Age: 57 Year
  Sex: Female

DRUGS (5)
  1. CLOZARIL [Suspect]
     Active Substance: CLOZAPINE
     Dosage: UNK
     Route: 048
     Dates: start: 20180924, end: 20190522
  2. CLOZARIL [Suspect]
     Active Substance: CLOZAPINE
     Dosage: UNK
     Route: 048
     Dates: start: 20191125
  3. AMISULPRID [Concomitant]
     Active Substance: AMISULPRIDE
     Indication: SCHIZOPHRENIA
     Dosage: 250 MG, UNK
     Route: 048
  4. CLOZARIL [Suspect]
     Active Substance: CLOZAPINE
     Indication: SCHIZOPHRENIA
     Dosage: UNK
     Route: 048
     Dates: start: 20170323, end: 20170825
  5. CLOZARIL [Suspect]
     Active Substance: CLOZAPINE
     Dosage: UNK

REACTIONS (11)
  - Neutropenia [Recovered/Resolved]
  - Eosinophil count decreased [Recovering/Resolving]
  - Rash [Unknown]
  - Thrombocytopenia [Not Recovered/Not Resolved]
  - Emotional distress [Unknown]
  - Neutrophilia [Unknown]
  - Drug-induced liver injury [Recovering/Resolving]
  - White blood cell count decreased [Recovered/Resolved]
  - Leukocytosis [Unknown]
  - Pyrexia [Unknown]
  - Anaemia [Not Recovered/Not Resolved]

NARRATIVE: CASE EVENT DATE: 2017
